FAERS Safety Report 5780208-3 (Version None)
Quarter: 2008Q2

REPORT INFORMATION
  Report Type: 
  Country: None (occurrence: None)
  Receive Date: 20080620
  Receipt Date: 20080613
  Transmission Date: 20081010
  Serious: Yes (Hospitalization)
  Sender: FDA-Public Use
  Company Number: MX-ASTRAZENECA-2008UW12138

PATIENT
  Age: 17064 Day
  Sex: Male

DRUGS (3)
  1. ZACTIMA [Suspect]
     Indication: NON-SMALL CELL LUNG CANCER
     Route: 048
     Dates: start: 20070801, end: 20080513
  2. OMEPRAZOLE [Concomitant]
     Indication: ABDOMINAL PAIN UPPER
     Route: 048
     Dates: start: 20071121
  3. LOPERAMIDE HCL [Concomitant]
     Indication: CONSTIPATION
     Route: 048
     Dates: start: 20071121, end: 20071219

REACTIONS (2)
  - BLOOD AMYLASE INCREASED [None]
  - PANCREATITIS [None]
